FAERS Safety Report 16478789 (Version 3)
Quarter: 2019Q3

REPORT INFORMATION
  Report Type: Spontaneous
  Country: US (occurrence: US)
  Receive Date: 20190626
  Receipt Date: 20190709
  Transmission Date: 20191004
  Serious: No
  Sender: FDA-Public Use
  Company Number: US-PFIZER INC-2019274193

PATIENT
  Age: 51 Year
  Sex: Female
  Weight: 95.24 kg

DRUGS (1)
  1. GABAPENTIN. [Suspect]
     Active Substance: GABAPENTIN
     Dosage: 900 MG, 3X/DAY (3 PILLS THREE TIMES A DAY BY MOUTH)
     Route: 048

REACTIONS (2)
  - Fibromyalgia [Not Recovered/Not Resolved]
  - Drug ineffective [Not Recovered/Not Resolved]
